FAERS Safety Report 19279685 (Version 1)
Quarter: 2021Q2

REPORT INFORMATION
  Report Type: Other
  Country: FR (occurrence: FR)
  Receive Date: 20210520
  Receipt Date: 20210520
  Transmission Date: 20210717
  Serious: Yes (Other)
  Sender: FDA-Public Use
  Company Number: FR-ROCHE-2830033

PATIENT

DRUGS (9)
  1. VITAMIN B12 [Concomitant]
     Active Substance: CYANOCOBALAMIN
     Dosage: BEGINNING AT LEAST 1 WEEK BEFORE THE FIRST DOSE AND CONTINUING UNTIL 3 WEEKS AFTER THE LAST DOSE OF
  2. CISPLATIN. [Suspect]
     Active Substance: CISPLATIN
     Indication: METASTASES TO CENTRAL NERVOUS SYSTEM
  3. CISPLATIN. [Suspect]
     Active Substance: CISPLATIN
     Indication: NON-SMALL CELL LUNG CANCER
     Route: 042
  4. BEVACIZUMAB. [Suspect]
     Active Substance: BEVACIZUMAB
     Indication: METASTASES TO CENTRAL NERVOUS SYSTEM
  5. PEMETREXED. [Suspect]
     Active Substance: PEMETREXED
     Indication: NON-SMALL CELL LUNG CANCER
     Route: 042
  6. PEMETREXED. [Suspect]
     Active Substance: PEMETREXED
     Indication: METASTASES TO CENTRAL NERVOUS SYSTEM
  7. FOLIC ACID. [Concomitant]
     Active Substance: FOLIC ACID
     Route: 048
  8. BEVACIZUMAB. [Suspect]
     Active Substance: BEVACIZUMAB
     Indication: NON-SMALL CELL LUNG CANCER
     Dosage: 1 EVERY 3 WEEKS, STARTING WITH THE SECOND CHEMOTHERAPY CYCLE
     Route: 065
  9. DEXAMETHASONE. [Concomitant]
     Active Substance: DEXAMETHASONE
     Route: 048

REACTIONS (10)
  - Asthenia [Unknown]
  - Renal failure [Unknown]
  - Nausea [Unknown]
  - Neutropenia [Unknown]
  - Decreased appetite [Unknown]
  - Hypertension [Unknown]
  - Anaemia [Unknown]
  - Vomiting [Unknown]
  - Diarrhoea [Unknown]
  - Mucosal inflammation [Unknown]
